FAERS Safety Report 5356140-6 (Version None)
Quarter: 2007Q2

REPORT INFORMATION
  Report Type: 
  Country: None (occurrence: None)
  Receive Date: 20070613
  Receipt Date: 20070602
  Transmission Date: 20071010
  Serious: Yes (Other)
  Sender: FDA-Public Use
  Company Number: PFIZER INC-2007030719

PATIENT
  Sex: Female
  Weight: 68 kg

DRUGS (10)
  1. CELEBREX [Suspect]
     Indication: ARTHRITIS
  2. CHANTIX [Suspect]
     Dates: start: 20070401, end: 20070401
  3. LIPITOR [Suspect]
  4. DOXYCYCLINE [Suspect]
  5. ANTIBIOTICS [Suspect]
  6. ANALGESICS [Suspect]
     Indication: BACK PAIN
  7. ASPIRIN [Concomitant]
  8. XANAX [Concomitant]
  9. VITAMIN B [Concomitant]
  10. CENTRUM [Concomitant]

REACTIONS (6)
  - CARDIOVASCULAR DISORDER [None]
  - HYPERSENSITIVITY [None]
  - INFLUENZA [None]
  - LIPID METABOLISM DISORDER [None]
  - MALAISE [None]
  - PAIN [None]
